FAERS Safety Report 4323347-6 (Version None)
Quarter: 2004Q1

REPORT INFORMATION
  Report Type: 
  Country: None (occurrence: None)
  Receive Date: 20040324
  Receipt Date: 20040324
  Transmission Date: 20041129
  Serious: No
  Sender: FDA-Public Use
  Company Number: None

PATIENT
  Sex: Male
  Weight: 72.5755 kg

DRUGS (8)
  1. ATAZANAVIR 300 MG [Suspect]
     Indication: ACQUIRED IMMUNODEFICIENCY SYNDROME
     Dosage: 300 MG ONCE PER D ORAL
     Route: 048
     Dates: start: 20030907, end: 20030914
  2. D4T [Concomitant]
  3. 3TC [Concomitant]
  4. RITONAVIR [Concomitant]
  5. TENOFOVIR [Concomitant]
  6. BACTRIM DS [Concomitant]
  7. FLONASE AQ [Concomitant]
  8. ATENOLOL [Concomitant]

REACTIONS (1)
  - HEPATIC ENZYME INCREASED [None]
